FAERS Safety Report 25416973 (Version 1)
Quarter: 2025Q2

REPORT INFORMATION
  Report Type: Spontaneous
  Country: GR (occurrence: GR)
  Receive Date: 20250610
  Receipt Date: 20250610
  Transmission Date: 20250717
  Serious: Yes (Death, Hospitalization)
  Sender: MYLAN
  Company Number: GR-MYLANLABS-2025M1048115

PATIENT
  Age: 45 Year
  Sex: Female

DRUGS (60)
  1. OXALIPLATIN [Suspect]
     Active Substance: OXALIPLATIN
     Indication: Adenocarcinoma of colon
     Dates: start: 2021
  2. OXALIPLATIN [Suspect]
     Active Substance: OXALIPLATIN
     Dates: start: 2021
  3. OXALIPLATIN [Suspect]
     Active Substance: OXALIPLATIN
     Route: 065
     Dates: start: 2021
  4. OXALIPLATIN [Suspect]
     Active Substance: OXALIPLATIN
     Route: 065
     Dates: start: 2021
  5. OXALIPLATIN [Suspect]
     Active Substance: OXALIPLATIN
  6. OXALIPLATIN [Suspect]
     Active Substance: OXALIPLATIN
  7. OXALIPLATIN [Suspect]
     Active Substance: OXALIPLATIN
     Route: 065
  8. OXALIPLATIN [Suspect]
     Active Substance: OXALIPLATIN
     Route: 065
  9. OXALIPLATIN [Suspect]
     Active Substance: OXALIPLATIN
  10. OXALIPLATIN [Suspect]
     Active Substance: OXALIPLATIN
     Route: 065
  11. OXALIPLATIN [Suspect]
     Active Substance: OXALIPLATIN
  12. OXALIPLATIN [Suspect]
     Active Substance: OXALIPLATIN
     Route: 065
  13. CAPECITABINE [Suspect]
     Active Substance: CAPECITABINE
     Indication: Adenocarcinoma of colon
     Dates: start: 2021
  14. CAPECITABINE [Suspect]
     Active Substance: CAPECITABINE
     Route: 065
     Dates: start: 2021
  15. CAPECITABINE [Suspect]
     Active Substance: CAPECITABINE
     Route: 065
     Dates: start: 2021
  16. CAPECITABINE [Suspect]
     Active Substance: CAPECITABINE
     Dates: start: 2021
  17. IRINOTECAN [Suspect]
     Active Substance: IRINOTECAN
     Indication: Adenocarcinoma of colon
  18. IRINOTECAN [Suspect]
     Active Substance: IRINOTECAN
  19. IRINOTECAN [Suspect]
     Active Substance: IRINOTECAN
     Route: 065
  20. IRINOTECAN [Suspect]
     Active Substance: IRINOTECAN
     Route: 065
  21. IRINOTECAN [Suspect]
     Active Substance: IRINOTECAN
  22. IRINOTECAN [Suspect]
     Active Substance: IRINOTECAN
  23. IRINOTECAN [Suspect]
     Active Substance: IRINOTECAN
     Route: 065
  24. IRINOTECAN [Suspect]
     Active Substance: IRINOTECAN
     Route: 065
  25. LEUCOVORIN [Suspect]
     Active Substance: LEUCOVORIN\LEUCOVORIN CALCIUM
     Indication: Adenocarcinoma of colon
  26. LEUCOVORIN [Suspect]
     Active Substance: LEUCOVORIN\LEUCOVORIN CALCIUM
  27. LEUCOVORIN [Suspect]
     Active Substance: LEUCOVORIN\LEUCOVORIN CALCIUM
     Route: 065
  28. LEUCOVORIN [Suspect]
     Active Substance: LEUCOVORIN\LEUCOVORIN CALCIUM
     Route: 065
  29. LEUCOVORIN [Suspect]
     Active Substance: LEUCOVORIN\LEUCOVORIN CALCIUM
  30. LEUCOVORIN [Suspect]
     Active Substance: LEUCOVORIN\LEUCOVORIN CALCIUM
  31. LEUCOVORIN [Suspect]
     Active Substance: LEUCOVORIN\LEUCOVORIN CALCIUM
     Route: 065
  32. LEUCOVORIN [Suspect]
     Active Substance: LEUCOVORIN\LEUCOVORIN CALCIUM
     Route: 065
  33. LEUCOVORIN [Suspect]
     Active Substance: LEUCOVORIN\LEUCOVORIN CALCIUM
  34. LEUCOVORIN [Suspect]
     Active Substance: LEUCOVORIN\LEUCOVORIN CALCIUM
     Route: 065
  35. LEUCOVORIN [Suspect]
     Active Substance: LEUCOVORIN\LEUCOVORIN CALCIUM
  36. LEUCOVORIN [Suspect]
     Active Substance: LEUCOVORIN\LEUCOVORIN CALCIUM
     Route: 065
  37. FLUOROURACIL [Suspect]
     Active Substance: FLUOROURACIL
     Indication: Adenocarcinoma of colon
  38. FLUOROURACIL [Suspect]
     Active Substance: FLUOROURACIL
  39. FLUOROURACIL [Suspect]
     Active Substance: FLUOROURACIL
     Route: 065
  40. FLUOROURACIL [Suspect]
     Active Substance: FLUOROURACIL
     Route: 065
  41. FLUOROURACIL [Suspect]
     Active Substance: FLUOROURACIL
  42. FLUOROURACIL [Suspect]
     Active Substance: FLUOROURACIL
  43. FLUOROURACIL [Suspect]
     Active Substance: FLUOROURACIL
     Route: 065
  44. FLUOROURACIL [Suspect]
     Active Substance: FLUOROURACIL
     Route: 065
  45. FLUOROURACIL [Suspect]
     Active Substance: FLUOROURACIL
  46. FLUOROURACIL [Suspect]
     Active Substance: FLUOROURACIL
     Route: 065
  47. FLUOROURACIL [Suspect]
     Active Substance: FLUOROURACIL
  48. FLUOROURACIL [Suspect]
     Active Substance: FLUOROURACIL
     Route: 065
  49. AFLIBERCEPT [Suspect]
     Active Substance: AFLIBERCEPT
     Indication: Adenocarcinoma of colon
  50. AFLIBERCEPT [Suspect]
     Active Substance: AFLIBERCEPT
     Route: 065
  51. AFLIBERCEPT [Suspect]
     Active Substance: AFLIBERCEPT
     Route: 065
  52. AFLIBERCEPT [Suspect]
     Active Substance: AFLIBERCEPT
  53. PANITUMUMAB [Suspect]
     Active Substance: PANITUMUMAB
     Indication: Adenocarcinoma of colon
  54. PANITUMUMAB [Suspect]
     Active Substance: PANITUMUMAB
     Route: 065
  55. PANITUMUMAB [Suspect]
     Active Substance: PANITUMUMAB
     Route: 065
  56. PANITUMUMAB [Suspect]
     Active Substance: PANITUMUMAB
  57. BEVACIZUMAB [Suspect]
     Active Substance: BEVACIZUMAB
     Indication: Adenocarcinoma of colon
  58. BEVACIZUMAB [Suspect]
     Active Substance: BEVACIZUMAB
     Route: 065
  59. BEVACIZUMAB [Suspect]
     Active Substance: BEVACIZUMAB
     Route: 065
  60. BEVACIZUMAB [Suspect]
     Active Substance: BEVACIZUMAB

REACTIONS (2)
  - Disease progression [Fatal]
  - Drug ineffective [Fatal]
